FAERS Safety Report 20648700 (Version 1)
Quarter: 2022Q1

REPORT INFORMATION
  Report Type: Spontaneous
  Country: US (occurrence: US)
  Receive Date: 20220329
  Receipt Date: 20220329
  Transmission Date: 20220423
  Serious: No
  Sender: FDA-Public Use
  Company Number: US-TRIS PHARMA, INC.-22US010129

PATIENT

DRUGS (6)
  1. QUILLIVANT XR [Suspect]
     Active Substance: METHYLPHENIDATE HYDROCHLORIDE
     Indication: Attention deficit hyperactivity disorder
     Dosage: 9 MILLILITRE, QD (4ML MORNING, 2ML 3 HOURS LATER, 2 ML 3 HOURS AFTER THAT, AND 1 ML AT 4 PM)
  2. QUILLIVANT XR [Suspect]
     Active Substance: METHYLPHENIDATE HYDROCHLORIDE
     Dosage: 9 MILLILITRE, QD (4ML MORNING, 2ML 3 HOURS LATER, 2 ML 3 HOURS AFTER THAT, AND 1 ML AT 4 PM)
  3. QUILLIVANT XR [Suspect]
     Active Substance: METHYLPHENIDATE HYDROCHLORIDE
     Dosage: 9 MILLILITRE, QD (4ML MORNING, 2ML 3 HOURS LATER, 2 ML 3 HOURS AFTER THAT, AND 1 ML AT 4 PM)
  4. QUILLIVANT XR [Suspect]
     Active Substance: METHYLPHENIDATE HYDROCHLORIDE
     Dosage: 9 MILLILITRE, QD (4ML MORNING, 2ML 3 HOURS LATER, 2 ML 3 HOURS AFTER THAT, AND 1 ML AT 4 PM)
  5. QUILLIVANT XR [Suspect]
     Active Substance: METHYLPHENIDATE HYDROCHLORIDE
     Dosage: 9 MILLILITRE, QD
  6. QUILLIVANT XR [Suspect]
     Active Substance: METHYLPHENIDATE HYDROCHLORIDE
     Dosage: UNK

REACTIONS (6)
  - Product taste abnormal [Unknown]
  - Product container issue [Unknown]
  - Off label use [Unknown]
  - Condition aggravated [Unknown]
  - Therapeutic response shortened [Unknown]
  - Drug ineffective [Unknown]
